FAERS Safety Report 10053372 (Version 1)
Quarter: 2014Q2

REPORT INFORMATION
  Report Type: Spontaneous
  Country: US (occurrence: US)
  Receive Date: 20140402
  Receipt Date: 20140402
  Transmission Date: 20141212
  Serious: No
  Sender: FDA-Public Use
  Company Number: US-PFIZER INC-2014089026

PATIENT
  Sex: Male

DRUGS (2)
  1. TIKOSYN [Suspect]
     Indication: ATRIAL FIBRILLATION
     Dosage: UNK
  2. TIKOSYN [Suspect]
     Indication: ATRIAL FLUTTER

REACTIONS (10)
  - Nasal congestion [Unknown]
  - Headache [Unknown]
  - Myalgia [Unknown]
  - Dizziness [Unknown]
  - Heart rate increased [Unknown]
  - Increased appetite [Unknown]
  - Disturbance in attention [Unknown]
  - Energy increased [Unknown]
  - Constipation [Unknown]
  - Abdominal pain upper [Unknown]
